FAERS Safety Report 10103522 (Version 1)
Quarter: 2014Q2

REPORT INFORMATION
  Report Type: Spontaneous
  Country: US (occurrence: US)
  Receive Date: 20140424
  Receipt Date: 20140424
  Transmission Date: 20141212
  Serious: No
  Sender: FDA-Public Use
  Company Number: US-BRISTOL-MYERS SQUIBB COMPANY-20497020

PATIENT
  Age: 67 Year
  Sex: Male
  Weight: 81.63 kg

DRUGS (7)
  1. ELIQUIS [Suspect]
     Indication: ATRIAL FIBRILLATION
     Dates: start: 20140312
  2. METOPROLOL TARTRATE [Concomitant]
  3. NORVASC [Concomitant]
  4. CRESTOR [Concomitant]
  5. ASPIRIN [Concomitant]
  6. CLONAZEPAM [Concomitant]
  7. FLOMAX [Concomitant]

REACTIONS (1)
  - Sensation of foreign body [Unknown]
